FAERS Safety Report 4370213-6 (Version None)
Quarter: 2004Q2

REPORT INFORMATION
  Report Type: 
  Country: None (occurrence: None)
  Receive Date: 20040603
  Receipt Date: 20040414
  Transmission Date: 20050107
  Serious: No
  Sender: FDA-Public Use
  Company Number: US-BRISTOL-MYERS SQUIBB COMPANY-12560959

PATIENT
  Age: 24 Year
  Sex: Male
  Weight: 82 kg

DRUGS (3)
  1. ABILIFY [Suspect]
     Indication: ANXIETY
     Route: 048
     Dates: start: 20040411
  2. ABILIFY [Suspect]
     Indication: AGITATION
     Route: 048
     Dates: start: 20040411
  3. CELEXA [Concomitant]

REACTIONS (4)
  - ANTISOCIAL BEHAVIOUR [None]
  - DYSPNOEA [None]
  - NASAL CONGESTION [None]
  - SOMNOLENCE [None]
